FAERS Safety Report 8946984 (Version 1)
Quarter: 2012Q4

REPORT INFORMATION
  Report Type: 
  Country: US (occurrence: US)
  Receive Date: 20121205
  Receipt Date: 20121205
  Transmission Date: 20130627
  Serious: Yes (Hospitalization)
  Sender: FDA-Public Use
  Company Number: US-PFIZER INC-2012305647

PATIENT
  Age: 41 Year
  Sex: Female
  Weight: 99.77 kg

DRUGS (1)
  1. LYRICA [Suspect]
     Indication: FIBROMYALGIA
     Dosage: UNK, 2x/day
     Route: 048

REACTIONS (10)
  - Anxiety [Unknown]
  - Suicidal ideation [Unknown]
  - Fluid retention [Unknown]
  - Dyspnoea [Unknown]
  - Rash [Unknown]
  - Pruritus [Unknown]
  - Swelling [Unknown]
  - Weight increased [Unknown]
  - Mood altered [Unknown]
  - Agitation [Unknown]
